FAERS Safety Report 8007440 (Version 2)
Quarter: 2012Q4

REPORT INFORMATION
  Report Type: 
  Country: ES (occurrence: ES)
  Receive Date: 20110624
  Receipt Date: 20121107
  Transmission Date: 20130627
  Serious: Yes (Hospitalization)
  Sender: FDA-Public Use
  Company Number: ES-JNJFOC-20110607424

PATIENT
  Age: 87 Year
  Sex: Female
  Weight: 73 kg

DRUGS (6)
  1. STELARA [Suspect]
     Indication: PUSTULAR PSORIASIS
     Dosage: 6 week after the 1 dose
     Route: 058
     Dates: start: 20110726
  2. STELARA [Suspect]
     Indication: PUSTULAR PSORIASIS
     Route: 058
     Dates: start: 20110613
  3. NEOTIGASON [Concomitant]
     Indication: PUSTULAR PSORIASIS
     Route: 065
     Dates: start: 201101
  4. ETANERCEPT [Concomitant]
     Indication: PUSTULAR PSORIASIS
     Route: 065
     Dates: start: 201104, end: 201106
  5. URBASON [Concomitant]
     Indication: PUSTULAR PSORIASIS
     Route: 065
     Dates: start: 201107
  6. URBASON [Concomitant]
     Indication: PUSTULAR PSORIASIS
     Route: 065

REACTIONS (6)
  - Erythrodermic psoriasis [Recovering/Resolving]
  - Off label use [Recovering/Resolving]
  - Herpes zoster [Unknown]
  - Psoriasis [Unknown]
  - Drug ineffective for unapproved indication [Unknown]
  - Pyrexia [Unknown]
